FAERS Safety Report 4665057-1 (Version None)
Quarter: 2005Q2

REPORT INFORMATION
  Report Type: 
  Country: None (occurrence: None)
  Receive Date: 20050518
  Receipt Date: 20050323
  Transmission Date: 20051028
  Serious: Yes (Hospitalization)
  Sender: FDA-Public Use
  Company Number: PHBS2005JP04270

PATIENT
  Age: 62 Year
  Sex: Male

DRUGS (7)
  1. TEGRETOL [Suspect]
     Indication: CONVULSION
     Dosage: 800 MG/D
     Route: 048
     Dates: start: 20040318, end: 20040729
  2. TEGRETOL [Suspect]
     Dosage: 600 MG/D
     Route: 048
     Dates: start: 20040730
  3. LEXOTAN [Concomitant]
     Indication: DEPRESSION
     Dosage: 8 MG/D
     Route: 048
     Dates: start: 20040318, end: 20040729
  4. LEXOTAN [Concomitant]
     Dosage: UNK, UNK
     Route: 048
     Dates: start: 20040730, end: 20040801
  5. ANAFRANIL [Suspect]
     Indication: DEPRESSION
     Dosage: 160 MG/D
     Route: 048
     Dates: start: 20040318, end: 20040729
  6. ANAFRANIL [Suspect]
     Dosage: 75 MG/D
     Route: 048
     Dates: start: 20040730
  7. ANAFRANIL [Suspect]
     Dosage: 160 MG/D
     Route: 048

REACTIONS (9)
  - ANTICONVULSANT DRUG LEVEL INCREASED [None]
  - ANTIDEPRESSANT DRUG LEVEL INCREASED [None]
  - ASTERIXIS [None]
  - CEREBRAL INFARCTION [None]
  - DEPRESSED LEVEL OF CONSCIOUSNESS [None]
  - DIZZINESS [None]
  - DRUG TOXICITY [None]
  - FALL [None]
  - SPEECH DISORDER [None]
